FAERS Safety Report 24291446 (Version 1)
Quarter: 2024Q3

REPORT INFORMATION
  Report Type: Spontaneous
  Country: US (occurrence: None)
  Receive Date: 20240906
  Receipt Date: 20240906
  Transmission Date: 20241016
  Serious: No
  Sender: DOMPE FARMACEUTICI
  Company Number: US-FARMAPROD-202308-202308-2606

PATIENT
  Sex: Female
  Weight: 42.64 kg

DRUGS (14)
  1. OXERVATE [Suspect]
     Active Substance: CENEGERMIN-BKBJ
     Indication: Neurotrophic keratopathy
     Route: 047
     Dates: start: 20230822
  2. HYDROCORTISONE [Concomitant]
     Active Substance: HYDROCORTISONE\HYDROCORTISONE ACETATE
  3. MELOXICAM [Concomitant]
     Active Substance: MELOXICAM
  4. LIOTHYRONINE SODIUM [Concomitant]
     Active Substance: LIOTHYRONINE SODIUM
  5. CALCITRIOL [Concomitant]
     Active Substance: CALCITRIOL
  6. RALOXIFENE [Concomitant]
     Active Substance: RALOXIFENE
  7. LEVOTHYROXINE SODIUM [Concomitant]
     Active Substance: LEVOTHYROXINE SODIUM
  8. HYOSCYAMINE SULFATE [Concomitant]
     Active Substance: HYOSCYAMINE SULFATE
     Dosage: 0.5 MG/ML VIAL
  9. CLONAZEPAM [Concomitant]
     Active Substance: CLONAZEPAM
  10. LISINOPRIL [Concomitant]
     Active Substance: LISINOPRIL
  11. FLUTICASONE PROPIONATE [Concomitant]
     Active Substance: FLUTICASONE PROPIONATE
  12. ROSUVASTATIN CALCIUM [Concomitant]
     Active Substance: ROSUVASTATIN CALCIUM
  13. METHOTREXATE [Concomitant]
     Active Substance: METHOTREXATE
  14. ESTRING [Concomitant]
     Active Substance: ESTRADIOL
     Dosage: 7.5MCG/24H VAGINAL RING.

REACTIONS (1)
  - Device use issue [Unknown]
